FAERS Safety Report 4614733-5 (Version None)
Quarter: 2005Q1

REPORT INFORMATION
  Report Type: 
  Country: None (occurrence: None)
  Receive Date: 20050322
  Receipt Date: 20050302
  Transmission Date: 20050727
  Serious: Yes (Death, Hospitalization)
  Sender: FDA-Public Use
  Company Number: 200510819FR

PATIENT
  Age: 71 Year
  Sex: Female
  Weight: 64 kg

DRUGS (6)
  1. TAXOTERE [Suspect]
     Indication: BREAST CANCER
     Route: 042
     Dates: start: 20050201, end: 20050201
  2. EPIRUBICIN [Suspect]
     Indication: BREAST CANCER
     Route: 042
     Dates: start: 20050201, end: 20050201
  3. NEUPOGEN [Concomitant]
     Indication: PROPHYLAXIS
     Dates: start: 20050204, end: 20050211
  4. LEVOTHYROX [Concomitant]
  5. SKENAN [Concomitant]
     Route: 048
     Dates: start: 20041028, end: 20050228
  6. NEORECORMON [Concomitant]
     Dates: start: 20050201, end: 20050201

REACTIONS (18)
  - ANAEMIA [None]
  - ASCITES [None]
  - BONE MARROW DEPRESSION [None]
  - COUGH [None]
  - DYSPNOEA [None]
  - FEBRILE BONE MARROW APLASIA [None]
  - FLUID RETENTION [None]
  - GENERAL PHYSICAL HEALTH DETERIORATION [None]
  - GENERALISED OEDEMA [None]
  - HYPOPROTEINAEMIA [None]
  - LUNG INFECTION [None]
  - LYMPHOEDEMA [None]
  - OEDEMA PERIPHERAL [None]
  - PLATELET COUNT DECREASED [None]
  - PLEURAL EFFUSION [None]
  - THERAPY NON-RESPONDER [None]
  - URINARY TRACT INFECTION [None]
  - VOMITING [None]
